FAERS Safety Report 23578165 (Version 1)
Quarter: 2024Q1

REPORT INFORMATION
  Report Type: Spontaneous
  Country: US (occurrence: US)
  Receive Date: 20240229
  Receipt Date: 20240229
  Transmission Date: 20240410
  Serious: No
  Sender: FDA-Public Use
  Company Number: US-PADAGIS-2024PAD00249

PATIENT

DRUGS (1)
  1. PODOFILOX [Suspect]
     Active Substance: PODOFILOX
     Indication: Anogenital warts
     Dosage: UNK, QD (ONCE A DAY IN THE MORNING)
     Route: 061
     Dates: start: 20240210, end: 20240212

REACTIONS (3)
  - Pigmentation disorder [Unknown]
  - Application site pain [Unknown]
  - Inappropriate schedule of product administration [Unknown]

NARRATIVE: CASE EVENT DATE: 20240210
